FAERS Safety Report 9525506 (Version 2)
Quarter: 2013Q3

REPORT INFORMATION
  Report Type: Spontaneous
  Country: US (occurrence: US)
  Receive Date: 20130916
  Receipt Date: 20130916
  Transmission Date: 20140515
  Serious: Yes (Hospitalization, Disabling, Other)
  Sender: FDA-Public Use
  Company Number: US-009507513-2010SP054733

PATIENT
  Sex: Female
  Weight: 110.2 kg

DRUGS (2)
  1. NUVARING [Suspect]
     Indication: CONTRACEPTION
     Dosage: UNK UNK, QM
     Route: 067
     Dates: start: 200807, end: 20081028
  2. VITAMINS (UNSPECIFIED) [Concomitant]

REACTIONS (17)
  - Pericardial effusion [Unknown]
  - Renal tubular acidosis [Unknown]
  - Nephrocalcinosis [Unknown]
  - Hypercoagulation [Unknown]
  - Pulmonary embolism [Recovering/Resolving]
  - Deep vein thrombosis [Recovered/Resolved]
  - Hordeolum [Unknown]
  - Fall [Recovered/Resolved]
  - Face injury [Unknown]
  - Vaginal abscess [Unknown]
  - Depression [Unknown]
  - Fungal infection [Unknown]
  - Vena cava filter insertion [Unknown]
  - Device difficult to use [Not Recovered/Not Resolved]
  - Deep vein thrombosis [Unknown]
  - Drug intolerance [Unknown]
  - Maternal exposure before pregnancy [Unknown]
